FAERS Safety Report 12646380 (Version 4)
Quarter: 2017Q2

REPORT INFORMATION
  Report Type: Spontaneous
  Country: CO (occurrence: CO)
  Receive Date: 20160812
  Receipt Date: 20170601
  Transmission Date: 20170830
  Serious: Yes (Hospitalization, Other)
  Sender: FDA-Public Use
  Company Number: CO-AMGEN-COLSP2016103842

PATIENT
  Age: 87 Year
  Sex: Female

DRUGS (2)
  1. ENBREL [Suspect]
     Active Substance: ETANERCEPT
     Indication: RHEUMATOID ARTHRITIS
     Dosage: 50 MG, WEEKLY
     Route: 058
     Dates: start: 2013, end: 2015
  2. ENBREL [Suspect]
     Active Substance: ETANERCEPT
     Dosage: 50 MG, UNK
     Route: 058
     Dates: start: 2014, end: 201609

REACTIONS (7)
  - Large intestinal haemorrhage [Unknown]
  - Hypovitaminosis [Unknown]
  - Thrombosis [Unknown]
  - Gastrointestinal fistula [Unknown]
  - Dehydration [Unknown]
  - Haemoglobin decreased [Unknown]
  - Blood potassium decreased [Unknown]
